FAERS Safety Report 9660905 (Version 1)
Quarter: 2013Q4

REPORT INFORMATION
  Report Type: Report from Study
  Country: DE (occurrence: DE)
  Receive Date: 20131031
  Receipt Date: 20131031
  Transmission Date: 20140711
  Serious: Yes (Other)
  Sender: FDA-Public Use
  Company Number: DE-B.I. PHARMACEUTICALS,INC./RIDGEFIELD-2013-BI-34549DE

PATIENT
  Age: 22 Year
  Sex: Male
  Weight: 70 kg

DRUGS (3)
  1. BUSCOPAN [Suspect]
     Dosage: 12 ANZ
     Route: 048
     Dates: start: 20131024
  2. TAMSULOSIN [Suspect]
     Route: 048
     Dates: start: 20131024
  3. NOVALGIN [Suspect]
     Route: 048
     Dates: start: 20131024

REACTIONS (2)
  - Suicide attempt [Unknown]
  - Overdose [Unknown]
